FAERS Safety Report 7788601-4 (Version None)
Quarter: 2011Q3

REPORT INFORMATION
  Report Type: 
  Country: None (occurrence: None)
  Receive Date: 20110930
  Receipt Date: 20110110
  Transmission Date: 20111222
  Serious: Yes (Other)
  Sender: FDA-Public Use
  Company Number: CA-AMGEN-CANSP2010009981

PATIENT
  Age: 59 Year
  Sex: Female
  Weight: 74.8 kg

DRUGS (9)
  1. PLAQUENIL [Concomitant]
  2. ENBREL [Suspect]
     Indication: PSORIASIS
     Dosage: 50 MG, Q2WK
     Dates: start: 20101216
  3. VITAMIN B12                        /00056201/ [Concomitant]
  4. ASPIRIN [Concomitant]
     Dosage: 81 MG, UNK
  5. FOLIC ACID [Concomitant]
  6. METFORMIN HCL [Concomitant]
  7. CLOBETASOL PROPIONATE [Concomitant]
     Route: 061
  8. METHOTREXATE [Concomitant]
  9. LIPITOR [Concomitant]

REACTIONS (3)
  - HYPOAESTHESIA ORAL [None]
  - INJECTION SITE REACTION [None]
  - PARAESTHESIA [None]
